FAERS Safety Report 8089116-9 (Version None)
Quarter: 2012Q1

REPORT INFORMATION
  Report Type: 
  Country: None (occurrence: None)
  Receive Date: 20120128
  Receipt Date: 20110707
  Transmission Date: 20120608
  Serious: No
  Sender: FDA-Public Use
  Company Number: US-ABBOTT-11P-163-0834666-00

PATIENT
  Sex: Female
  Weight: 59.474 kg

DRUGS (3)
  1. HUMIRA [Suspect]
     Route: 050
     Dates: start: 20110620, end: 20110620
  2. HUMIRA [Suspect]
     Indication: RHEUMATOID ARTHRITIS
     Route: 058
     Dates: start: 20110214, end: 20110523
  3. DIOVAN [Concomitant]
     Indication: HYPERTENSION
     Route: 048

REACTIONS (3)
  - PHYSICAL DISABILITY [None]
  - ARTHRITIS [None]
  - MOVEMENT DISORDER [None]
